FAERS Safety Report 9627547 (Version 2)
Quarter: 2013Q4

REPORT INFORMATION
  Report Type: Spontaneous
  Country: US (occurrence: US)
  Receive Date: 20131016
  Receipt Date: 20131105
  Transmission Date: 20140711
  Serious: No
  Sender: FDA-Public Use
  Company Number: US-TEVA-438670USA

PATIENT
  Age: 27 Year
  Sex: Female

DRUGS (2)
  1. PLAN B ONE-STEP [Suspect]
     Indication: POST COITAL CONTRACEPTION
     Dosage: 1.5 MILLIGRAM DAILY;
     Route: 048
     Dates: start: 20131009, end: 20131009
  2. XANAX [Concomitant]
     Indication: ANXIETY

REACTIONS (4)
  - Hot flush [Recovered/Resolved]
  - Back pain [Recovered/Resolved]
  - Dysmenorrhoea [Recovered/Resolved]
  - Menstruation irregular [Recovered/Resolved]
